FAERS Safety Report 12370645 (Version 1)
Quarter: 2016Q2

REPORT INFORMATION
  Report Type: Report from Study
  Country: KR (occurrence: KR)
  Receive Date: 20160516
  Receipt Date: 20160516
  Transmission Date: 20160815
  Serious: Yes (Hospitalization)
  Sender: FDA-Public Use
  Company Number: KR-ELI_LILLY_AND_COMPANY-KR201605001443

PATIENT
  Age: 34 Year
  Sex: Female
  Weight: 48.3 kg

DRUGS (14)
  1. DEXAMETHASONE. [Concomitant]
     Active Substance: DEXAMETHASONE
     Dosage: 0.5 MG, UNK
     Dates: start: 20160426, end: 20160429
  2. CYRAMZA [Suspect]
     Active Substance: RAMUCIRUMAB
     Indication: ADENOCARCINOMA GASTRIC
     Dosage: 8 MG/KG, EVERY TWO WEEKS
     Route: 042
     Dates: start: 20151202
  3. GASMOTIN [Concomitant]
     Active Substance: MOSAPRIDE CITRATE
     Indication: GASTRIC CANCER
     Dosage: 5 MG, UNK
     Dates: start: 20160426
  4. MACPERAN [Concomitant]
     Active Substance: METOCLOPRAMIDE HYDROCHLORIDE
     Indication: GASTRIC CANCER
     Dosage: 10 MG/2ML
     Dates: start: 20160502, end: 20160502
  5. DEXAMETHASONE. [Concomitant]
     Active Substance: DEXAMETHASONE
     Indication: GASTRIC CANCER
     Dosage: 5 MG/1ML AMP
     Dates: start: 20160426, end: 20160426
  6. CURAN [Concomitant]
     Active Substance: RANITIDINE HYDROCHLORIDE
     Dosage: 50 MG/2ML
     Dates: start: 20160426, end: 20160426
  7. NEURONTIN [Concomitant]
     Active Substance: GABAPENTIN
     Indication: GASTRIC CANCER
     Dosage: 300 MG, UNK
     Dates: start: 20160426, end: 20160429
  8. LASIX [Concomitant]
     Active Substance: FUROSEMIDE
     Indication: GASTRIC CANCER
     Dosage: 20 MG/2ML
     Dates: start: 20160502
  9. STILNOX [Concomitant]
     Active Substance: ZOLPIDEM TARTRATE
     Indication: GASTRIC CANCER
     Dosage: UNK
     Dates: start: 20160426
  10. IRCODON [Concomitant]
     Indication: GASTRIC CANCER
     Dosage: UNK
     Dates: start: 20160426
  11. ZANTAC [Concomitant]
     Active Substance: RANITIDINE HYDROCHLORIDE
     Indication: GASTRIC CANCER
     Dosage: 75 MG, UNK
     Dates: start: 20160426, end: 20160429
  12. TAXOL [Concomitant]
     Active Substance: PACLITAXEL
     Indication: GASTRIC CANCER
     Dosage: 30 MG/5ML
     Dates: start: 20160426, end: 20160426
  13. FERROBA-U [Concomitant]
     Indication: GASTRIC CANCER
     Dosage: 80 MG, UNK
     Dates: start: 20160426
  14. PENIRAMIN [Concomitant]
     Indication: GASTRIC CANCER
     Dosage: 4 MG/2ML
     Dates: start: 20160426, end: 20160426

REACTIONS (3)
  - Abdominal pain [Recovering/Resolving]
  - Platelet count decreased [Unknown]
  - Haemoglobin decreased [Unknown]

NARRATIVE: CASE EVENT DATE: 20160502
